FAERS Safety Report 8459371-1 (Version None)
Quarter: 2012Q2

REPORT INFORMATION
  Report Type: 
  Country: None (occurrence: None)
  Receive Date: 20120615
  Receipt Date: 20120601
  Transmission Date: 20120825
  Serious: Yes (Hospitalization)
  Sender: FDA-Public Use
  Company Number: 2012P1039638

PATIENT
  Age: 75 Year
  Sex: Male

DRUGS (5)
  1. MABTHERA (RITUXIMAB INJECTION) (NO PREF. NAME) [Suspect]
     Indication: WALDENSTROM'S MACROGLOBULINAEMIA
     Dates: end: 20120202
  2. POLARAMINE [Suspect]
     Indication: PREMEDICATION
     Dates: start: 20120202, end: 20120202
  3. ACETAMINOPHEN [Suspect]
     Indication: PREMEDICATION
     Dosage: PO
     Route: 048
     Dates: start: 20120202, end: 20120202
  4. RANITIDINE HCL [Suspect]
     Indication: PREMEDICATION
     Dates: start: 20120202, end: 20120202
  5. SOLU-MEDROL [Suspect]
     Indication: PREMEDICATION
     Dosage: IV
     Route: 042
     Dates: start: 20120202, end: 20120202

REACTIONS (7)
  - PURPURA [None]
  - ORTHOSTATIC HYPOTENSION [None]
  - THROMBOCYTOPENIA [None]
  - URTICARIA [None]
  - CHILLS [None]
  - ANAPHYLACTIC SHOCK [None]
  - MALAISE [None]
